FAERS Safety Report 5426534-9 (Version None)
Quarter: 2007Q3

REPORT INFORMATION
  Report Type: 
  Country: None (occurrence: None)
  Receive Date: 20070731
  Receipt Date: 20070422
  Transmission Date: 20080115
  Serious: No
  Sender: FDA-Public Use
  Company Number: US200704004886

PATIENT
  Age: 81 Year
  Sex: Male
  Weight: 104.3 kg

DRUGS (4)
  1. BYETTA [Suspect]
     Indication: DIABETES MELLITUS
     Dosage: 5 UG, 2/D, SUBCUTANEOUS; 10 UG, 2/D, SUBCUTANEOUS
     Route: 058
  2. METFORMIN HCL [Concomitant]
  3. GLYBURIDE [Concomitant]
  4. AVANDIA [Concomitant]

REACTIONS (1)
  - WEIGHT INCREASED [None]
